FAERS Safety Report 12918833 (Version 2)
Quarter: 2017Q1

REPORT INFORMATION
  Report Type: Report from Study
  Country: FR (occurrence: FR)
  Receive Date: 20161108
  Receipt Date: 20170209
  Transmission Date: 20170428
  Serious: Yes (Hospitalization)
  Sender: FDA-Public Use
  Company Number: FR-ROCHE-1670772

PATIENT
  Age: 61 Year
  Sex: Male

DRUGS (8)
  1. ATEZOLIZUMAB [Suspect]
     Active Substance: ATEZOLIZUMAB
     Indication: BLADDER CANCER
     Dosage: MOST RECENT DOSE PRIOR TO THE EVENT: 12/NOV/2015?ONCE EVERY 3 WEEKS FOR 16 CYCLES OR 1 YEAR AS PER P
     Route: 042
     Dates: start: 20151112
  2. CORDARONE [Concomitant]
     Active Substance: AMIODARONE HYDROCHLORIDE
     Indication: ATRIAL FIBRILLATION
     Route: 048
     Dates: start: 20151201, end: 20151215
  3. TARDYFERON (FRANCE) [Concomitant]
     Active Substance: FERROUS SULFATE\GASTRIC MUCIN
     Indication: IRON DEFICIENCY
     Route: 048
  4. RIVOTRIL [Concomitant]
     Active Substance: CLONAZEPAM
     Route: 030
     Dates: start: 20151127, end: 20151127
  5. KEPPRA [Concomitant]
     Active Substance: LEVETIRACETAM
     Indication: SEIZURE
     Route: 048
     Dates: start: 20151128
  6. INEXIUM [Concomitant]
     Active Substance: ESOMEPRAZOLE
     Indication: GASTROOESOPHAGEAL REFLUX DISEASE
     Route: 048
     Dates: start: 20151201
  7. LOVENOX [Concomitant]
     Active Substance: ENOXAPARIN SODIUM
     Route: 058
     Dates: start: 20151201
  8. INNOHEP [Concomitant]
     Active Substance: TINZAPARIN SODIUM
     Dosage: INDICATION: ANTICOAGULANT
     Route: 058
     Dates: start: 20150922

REACTIONS (1)
  - Neuroborreliosis [Recovered/Resolved]

NARRATIVE: CASE EVENT DATE: 20151124
